FAERS Safety Report 18173998 (Version 1)
Quarter: 2020Q3

REPORT INFORMATION
  Report Type: Spontaneous
  Country: US (occurrence: US)
  Receive Date: 20200819
  Receipt Date: 20200819
  Transmission Date: 20201103
  Serious: Yes (Hospitalization)
  Sender: FDA-Public Use
  Company Number: None

PATIENT
  Age: 43 Year
  Sex: Female

DRUGS (7)
  1. METOPROLOL. [Concomitant]
     Active Substance: METOPROLOL
  2. DIAZEPAM. [Concomitant]
     Active Substance: DIAZEPAM
  3. HYDROCO/APAP [Concomitant]
     Active Substance: ACETAMINOPHEN\HYDROCODONE
  4. TAMSULOSIN [Concomitant]
     Active Substance: TAMSULOSIN
  5. LAMOTRIGINE. [Concomitant]
     Active Substance: LAMOTRIGINE
  6. LEVOTHYROXINE. [Concomitant]
     Active Substance: LEVOTHYROXINE
  7. BENLYSTA [Suspect]
     Active Substance: BELIMUMAB
     Indication: SPONDYLOARTHROPATHY
     Dosage: ?          OTHER FREQUENCY:EVERY 7 DAYS;?
     Route: 058

REACTIONS (2)
  - Fatigue [None]
  - Nephrolithiasis [None]

NARRATIVE: CASE EVENT DATE: 20200818
